FAERS Safety Report 8891667 (Version 1)
Quarter: 2012Q4

REPORT INFORMATION
  Report Type: 
  Country: US (occurrence: US)
  Receive Date: 20121107
  Receipt Date: 20121107
  Transmission Date: 20130627
  Serious: No
  Sender: FDA-Public Use
  Company Number: US-AMGEN-USASP2011056130

PATIENT
  Age: 57 Year
  Sex: Male

DRUGS (9)
  1. ENBREL [Suspect]
     Indication: PRODUCT USED FOR UNKNOWN INDICATION
     Dosage: 50 mg, qwk
  2. XANAX [Concomitant]
     Dosage: 2 mg, UNK
  3. METHOTREXATE [Concomitant]
     Dosage: 2.5 mg, UNK
  4. LORATADINE [Concomitant]
     Dosage: 10 mg, UNK
  5. SIMVASTATIN [Concomitant]
     Dosage: 5 mg, UNK
  6. VITAMIN B12 [Concomitant]
     Dosage: 50 mug, UNK
  7. FISH OIL [Concomitant]
     Dosage: UNK
  8. HYDROCODONE, HOMATROP [Concomitant]
     Dosage: UNK
  9. VITAMIN D [Concomitant]
     Dosage: 400 IU, UNK

REACTIONS (2)
  - Musculoskeletal stiffness [Unknown]
  - Ligament sprain [Unknown]
